FAERS Safety Report 6404395-9 (Version None)
Quarter: 2009Q4

REPORT INFORMATION
  Report Type: 
  Country: None (occurrence: None)
  Receive Date: 20091016
  Receipt Date: 20091010
  Transmission Date: 20100525
  Serious: Yes (Hospitalization)
  Sender: FDA-Public Use
  Company Number: PR-MERCK-0910USA01371

PATIENT
  Age: 53 Year
  Sex: Female

DRUGS (3)
  1. ISENTRESS [Suspect]
     Route: 048
  2. SUSTIVA [Concomitant]
     Route: 048
  3. ZIDOVUDINE [Concomitant]
     Route: 065

REACTIONS (1)
  - PANCREATITIS [None]
